FAERS Safety Report 4984102-7 (Version None)
Quarter: 2006Q1

REPORT INFORMATION
  Report Type: 
  Country: None (occurrence: None)
  Receive Date: 20060302
  Receipt Date: 20050825
  Transmission Date: 20060701
  Serious: Yes (Hospitalization)
  Sender: FDA-Public Use
  Company Number: 1897

PATIENT
  Age: 67 Year
  Sex: Female

DRUGS (4)
  1. TARGRETIN [Suspect]
     Indication: MYCOSIS FUNGOIDES
     Dosage: 225 MG DAILY PO
     Route: 048
     Dates: start: 20050301
  2. ACYCLOVIR [Concomitant]
  3. FENOFIBRATE [Concomitant]
  4. LEVOTHYROXINE SODIUM [Concomitant]

REACTIONS (1)
  - PSEUDO LYMPHOMA [None]
